FAERS Safety Report 10233055 (Version 1)
Quarter: 2014Q2

REPORT INFORMATION
  Report Type: Spontaneous
  Country: US (occurrence: US)
  Receive Date: 20140612
  Receipt Date: 20140612
  Transmission Date: 20141212
  Serious: No
  Sender: FDA-Public Use
  Company Number: US-PFIZER INC-2014157505

PATIENT
  Age: 56 Year
  Sex: Male
  Weight: 99.32 kg

DRUGS (2)
  1. TIKOSYN [Suspect]
     Indication: HEART RATE IRREGULAR
     Dosage: 0.25 MG, 2X/DAY
     Dates: start: 2012
  2. WARFARIN [Concomitant]
     Indication: ANTICOAGULANT THERAPY
     Dosage: 8 MG, 1X/DAY

REACTIONS (1)
  - Fatigue [Unknown]
